APPROVED DRUG PRODUCT: GLUCOPHAGE
Active Ingredient: METFORMIN HYDROCHLORIDE
Strength: 625MG **Federal Register determination that product was not discontinued or withdrawn for safety or effectiveness reasons**
Dosage Form/Route: TABLET;ORAL
Application: N020357 | Product #003
Applicant: EMD SERONO INC
Approved: Nov 5, 1998 | RLD: Yes | RS: No | Type: DISCN